FAERS Safety Report 7734076-0 (Version None)
Quarter: 2011Q3

REPORT INFORMATION
  Report Type: 
  Country: None (occurrence: None)
  Receive Date: 20110907
  Receipt Date: 20110826
  Transmission Date: 20111222
  Serious: Yes (Other)
  Sender: FDA-Public Use
  Company Number: US-NOVOPROD-334196

PATIENT
  Sex: Male
  Weight: 117.91 kg

DRUGS (1)
  1. VICTOZA [Suspect]
     Indication: PRODUCT USED FOR UNKNOWN INDICATION
     Dosage: UNKNOWN
     Route: 058
     Dates: end: 20110826

REACTIONS (3)
  - PANCREATITIS [None]
  - FLATULENCE [None]
  - FEELING ABNORMAL [None]
